FAERS Safety Report 12968752 (Version 1)
Quarter: 2016Q4

REPORT INFORMATION
  Report Type: Spontaneous
  Country: US (occurrence: US)
  Receive Date: 20161123
  Receipt Date: 20161123
  Transmission Date: 20170207
  Serious: Yes (Other)
  Sender: FDA-Public Use
  Company Number: US-SA-2016SA209420

PATIENT
  Age: 70 Year
  Sex: Male

DRUGS (6)
  1. IRINOTECAN [Suspect]
     Active Substance: IRINOTECAN
     Indication: PANCREATIC CARCINOMA METASTATIC
     Route: 065
  2. POTASSIUM [Concomitant]
     Active Substance: POTASSIUM
  3. OXALIPLATIN. [Suspect]
     Active Substance: OXALIPLATIN
     Indication: PANCREATIC CARCINOMA METASTATIC
     Route: 065
  4. INSULIN [Concomitant]
     Active Substance: INSULIN NOS
  5. FLUOROURACIL. [Suspect]
     Active Substance: FLUOROURACIL
     Indication: PANCREATIC CARCINOMA METASTATIC
     Route: 065
  6. FOLINIC ACID [Suspect]
     Active Substance: LEUCOVORIN
     Indication: PANCREATIC CARCINOMA METASTATIC
     Route: 065

REACTIONS (8)
  - Malignant neoplasm progression [Unknown]
  - Therapeutic response decreased [Unknown]
  - Fatigue [Unknown]
  - Metastases to lung [Unknown]
  - Pancreatic carcinoma metastatic [Unknown]
  - Carbohydrate antigen 19-9 increased [Unknown]
  - Pulmonary mass [Unknown]
  - Lymphadenopathy mediastinal [Unknown]
